FAERS Safety Report 9379088 (Version 1)
Quarter: 2013Q3

REPORT INFORMATION
  Report Type: Spontaneous
  Country: US (occurrence: US)
  Receive Date: 20130702
  Receipt Date: 20130702
  Transmission Date: 20140515
  Serious: Yes (Hospitalization)
  Sender: FDA-Public Use
  Company Number: PHEH2013US011619

PATIENT
  Age: 57 Year
  Sex: Male

DRUGS (6)
  1. TASIGNA [Suspect]
     Indication: CHRONIC MYELOID LEUKAEMIA
     Dosage: 300 MG, BID
     Route: 048
     Dates: start: 20130501, end: 20130529
  2. TASIGNA [Suspect]
     Dosage: 300 MG, BID
     Route: 048
     Dates: start: 20130605
  3. IBUPROFEN [Concomitant]
  4. PANTOPRAZOLE [Concomitant]
     Dosage: 40 MG, QD
  5. ZOLPIDEM [Concomitant]
     Dosage: 10 MG, QD
  6. SERTRALINE [Concomitant]
     Dosage: 50 MG, QD

REACTIONS (2)
  - Rib fracture [Unknown]
  - Pleuritic pain [Recovered/Resolved]
